FAERS Safety Report 7060500-5 (Version None)
Quarter: 2010Q4

REPORT INFORMATION
  Report Type: 
  Country: None (occurrence: None)
  Receive Date: 20101025
  Receipt Date: 20101015
  Transmission Date: 20110411
  Serious: Yes (Other)
  Sender: FDA-Public Use
  Company Number: GR-PFIZER INC-2010131009

PATIENT
  Sex: Male
  Weight: 53 kg

DRUGS (2)
  1. ATORVASTATIN CALCIUM [Suspect]
     Indication: METABOLIC SYNDROME
     Dosage: 40 MG, 1X/DAY
     Route: 048
     Dates: start: 20050926
  2. ATORVASTATIN CALCIUM [Suspect]
     Indication: DYSLIPIDAEMIA

REACTIONS (1)
  - OEDEMA PERIPHERAL [None]
